FAERS Safety Report 20990341 (Version 1)
Quarter: 2022Q2

REPORT INFORMATION
  Report Type: Spontaneous
  Country: CN (occurrence: CN)
  Receive Date: 20220622
  Receipt Date: 20220622
  Transmission Date: 20220721
  Serious: Yes (Other)
  Sender: FDA-Public Use
  Company Number: CN-BIOVITRUM-2022CN07961

PATIENT
  Age: 58 Year
  Sex: Male

DRUGS (4)
  1. DOPTELET [Suspect]
     Active Substance: AVATROMBOPAG MALEATE
     Indication: Thrombocytopenia
     Route: 048
     Dates: start: 20220515, end: 20220519
  2. POLYENE PHOSPHATIDYLCHOLINE CAPSULES [Concomitant]
     Indication: Liver injury
     Route: 048
  3. ENTECAVIR [Concomitant]
     Active Substance: ENTECAVIR
     Indication: Hepatitis B
     Route: 048
  4. ADEMETIONINE 1, 4-BUTANEDISULFONATE ENTERIC COATED TABLETS [Concomitant]
     Indication: Benign recurrent intrahepatic cholestasis
     Route: 048

REACTIONS (1)
  - Portal vein thrombosis [Not Recovered/Not Resolved]

NARRATIVE: CASE EVENT DATE: 20220531
